FAERS Safety Report 10340291 (Version 3)
Quarter: 2014Q3

REPORT INFORMATION
  Report Type: Spontaneous
  Country: US (occurrence: US)
  Receive Date: 20140724
  Receipt Date: 20140725
  Transmission Date: 20150326
  Serious: No
  Sender: FDA-Public Use
  Company Number: US-ASTRAZENECA-2013SE62533

PATIENT
  Age: 58 Year
  Sex: Female
  Weight: 61.2 kg

DRUGS (8)
  1. SEROQUEL [Suspect]
     Active Substance: QUETIAPINE FUMARATE
     Indication: BIPOLAR I DISORDER
     Route: 048
     Dates: start: 2002
  2. BENZTROPINE [Concomitant]
     Active Substance: BENZTROPINE
  3. INSULIN [Concomitant]
     Active Substance: INSULIN NOS
  4. HIGH BLOOD PRESSURE MEDICINE [Concomitant]
  5. SEROQUEL [Suspect]
     Active Substance: QUETIAPINE FUMARATE
     Indication: BIPOLAR I DISORDER
     Route: 048
  6. LAMICTAL [Concomitant]
     Active Substance: LAMOTRIGINE
  7. SEROQUEL [Suspect]
     Active Substance: QUETIAPINE FUMARATE
     Indication: BIPOLAR I DISORDER
     Dosage: BREAKS HER 300MG DAILY DOSE UP THROUGH OUT THE DAY
     Route: 048
  8. SEROQUEL [Suspect]
     Active Substance: QUETIAPINE FUMARATE
     Indication: BIPOLAR I DISORDER
     Dosage: GENERIC
     Route: 048

REACTIONS (8)
  - Middle insomnia [Unknown]
  - Weight decreased [Unknown]
  - Intentional product misuse [Unknown]
  - Insomnia [Unknown]
  - Hallucination, auditory [Unknown]
  - Therapeutic response changed [Unknown]
  - Blood pressure abnormal [Unknown]
  - Drug ineffective [Unknown]
